FAERS Safety Report 25732216 (Version 1)
Quarter: 2025Q3

REPORT INFORMATION
  Report Type: Spontaneous
  Country: US (occurrence: US)
  Receive Date: 20250827
  Receipt Date: 20250827
  Transmission Date: 20251020
  Serious: Yes (Other)
  Sender: NOVO NORDISK
  Company Number: US-NOVOPROD-1507221

PATIENT
  Age: 42 Year
  Sex: Female

DRUGS (7)
  1. OZEMPIC [Suspect]
     Active Substance: SEMAGLUTIDE
     Indication: Glucose tolerance impaired
     Dosage: 2 MG, QW
     Route: 058
  2. OZEMPIC [Suspect]
     Active Substance: SEMAGLUTIDE
  3. OZEMPIC [Suspect]
     Active Substance: SEMAGLUTIDE
     Indication: Hyperthyroidism
  4. OZEMPIC [Suspect]
     Active Substance: SEMAGLUTIDE
  5. OZEMPIC [Suspect]
     Active Substance: SEMAGLUTIDE
  6. OZEMPIC [Suspect]
     Active Substance: SEMAGLUTIDE
     Indication: Hyperthyroidism
  7. OZEMPIC [Suspect]
     Active Substance: SEMAGLUTIDE
     Indication: Glucose tolerance impaired
     Dates: start: 202309

REACTIONS (5)
  - Renal surgery [Recovering/Resolving]
  - Bladder operation [Recovering/Resolving]
  - Blood urine present [Recovering/Resolving]
  - Injection site pain [Unknown]
  - Off label use [Unknown]

NARRATIVE: CASE EVENT DATE: 20250101
